FAERS Safety Report 17984477 (Version 1)
Quarter: 2020Q3

REPORT INFORMATION
  Report Type: Spontaneous
  Country: US (occurrence: US)
  Receive Date: 20200706
  Receipt Date: 20200706
  Transmission Date: 20201103
  Serious: Yes (Other)
  Sender: FDA-Public Use
  Company Number: US-FRESENIUS KABI-FK202006711

PATIENT
  Age: 59 Year
  Sex: Male

DRUGS (7)
  1. DOXORUBICIN (MANUFACTURER UNKNOWN) [Suspect]
     Active Substance: DOXORUBICIN
     Indication: HODGKIN^S DISEASE MIXED CELLULARITY STAGE UNSPECIFIED
     Route: 065
     Dates: end: 199704
  2. BLEOMYCIN [Suspect]
     Active Substance: BLEOMYCIN SULFATE
     Indication: HODGKIN^S DISEASE MIXED CELLULARITY STAGE UNSPECIFIED
     Route: 065
     Dates: end: 199704
  3. CHLORMETHINE [Suspect]
     Active Substance: MECHLORETHAMINE
     Indication: HODGKIN^S DISEASE MIXED CELLULARITY STAGE UNSPECIFIED
     Route: 065
     Dates: end: 199704
  4. VINCRISTINE [Suspect]
     Active Substance: VINCRISTINE
     Indication: HODGKIN^S DISEASE MIXED CELLULARITY STAGE UNSPECIFIED
     Route: 065
     Dates: end: 199704
  5. VINBLASTINE (MANUFACTURER UNKNOWN) [Suspect]
     Active Substance: VINBLASTINE
     Indication: HODGKIN^S DISEASE MIXED CELLULARITY STAGE UNSPECIFIED
     Route: 065
     Dates: end: 199704
  6. PROCARBAZINE [Suspect]
     Active Substance: PROCARBAZINE
     Indication: HODGKIN^S DISEASE MIXED CELLULARITY STAGE UNSPECIFIED
     Route: 065
     Dates: end: 199704
  7. PREDNISONE. [Suspect]
     Active Substance: PREDNISONE
     Indication: HODGKIN^S DISEASE MIXED CELLULARITY STAGE UNSPECIFIED
     Route: 065
     Dates: end: 199704

REACTIONS (2)
  - Dysphagia [Unknown]
  - Dysphagia [Unknown]

NARRATIVE: CASE EVENT DATE: 200710
